FAERS Safety Report 10732666 (Version 2)
Quarter: 2015Q3

REPORT INFORMATION
  Report Type: Spontaneous
  Country: US (occurrence: None)
  Receive Date: 20150120
  Receipt Date: 20150724
  Transmission Date: 20151125
  Serious: Yes (Hospitalization)
  Sender: FDA-Public Use
  Company Number: US-H14001-15-00052

PATIENT
  Age: 62 Year
  Sex: Male

DRUGS (20)
  1. PRAVASTATIN [Concomitant]
     Active Substance: PRAVASTATIN\PRAVASTATIN SODIUM
  2. ZOFRAN (ONDANSETRON) [Concomitant]
  3. LIDOCAINE BENADRYL (LIDOCAINE) [Concomitant]
  4. TRICOR [Concomitant]
     Active Substance: FENOFIBRATE
  5. HYTRIN (TERAZOSIN HYDROCHLORIDE) [Concomitant]
  6. TH-302 [Suspect]
     Active Substance: EVOFOSFAMIDE
     Indication: PLASMA CELL MYELOMA
     Dosage: 680 MG, ON DAYS 1, 4, 8  AND 11 OF A 21-DAY CYCLE, INTRAVENOUS DRIP
     Route: 041
     Dates: start: 20140228
  7. VITAMIN B12 [Concomitant]
     Active Substance: CYANOCOBALAMIN
  8. DOCUSATE (DOCUSATE) [Concomitant]
     Active Substance: DOCUSATE
  9. TRIAMCINOLONE ACETONIDE. [Concomitant]
     Active Substance: TRIAMCINOLONE ACETONIDE
  10. CEFUROXIME (CEFUROXIME0 [Concomitant]
  11. DECADRON [Concomitant]
     Active Substance: DEXAMETHASONE
  12. ZOMETA [Concomitant]
     Active Substance: ZOLEDRONIC ACID
  13. LEVAQUIN [Concomitant]
     Active Substance: LEVOFLOXACIN
  14. CETYLPYRIDINIUM CHLORIDE (CETYLPYRIDINIUM CHLORIDE) [Concomitant]
  15. MAGIC MOUTHWASH (MACLEANS MOUTHGUARD) (UNKNOWN) (CETYLPYRIDINIUM CHLORIDE, SODIUM FLUORIDE) [Concomitant]
  16. PHENERGAN [Concomitant]
     Active Substance: PROMETHAZINE HYDROCHLORIDE
  17. NORMAL SALINE (SODIUM CHLORIDE) [Concomitant]
  18. SILVADENS (SULFADIAZINE SILVER) [Concomitant]
  19. SINGULAIR (MONTELUKAST SODIUM) [Concomitant]
  20. DEXAMETHASONE (DEXAMETHASONE SODIUM PHOSPHATE) (UNKNOWN) (DEXAMETHASONE SODIUM PHOSPHATE) [Suspect]
     Active Substance: DEXAMETHASONE SODIUM PHOSPHATE
     Indication: PLASMA CELL MYELOMA
     Dosage: 40 MG, CYCLE 1, INTRAVENOUS BOLUS
     Route: 040
     Dates: start: 20140228, end: 2014

REACTIONS (6)
  - Plasma cell myeloma [None]
  - Plasma cell leukaemia [None]
  - Clostridium difficile colitis [None]
  - Pneumonia [None]
  - Fluid overload [None]
  - Neutropenia [None]

NARRATIVE: CASE EVENT DATE: 201404
